FAERS Safety Report 23579221 (Version 2)
Quarter: 2024Q2

REPORT INFORMATION
  Report Type: Spontaneous
  Country: US (occurrence: US)
  Receive Date: 20240229
  Receipt Date: 20240402
  Transmission Date: 20240715
  Serious: No
  Sender: FDA-Public Use
  Company Number: US-OPELLA-2024OHG006125

PATIENT

DRUGS (1)
  1. NICODERM CQ [Suspect]
     Active Substance: NICOTINE
     Indication: Product used for unknown indication

REACTIONS (3)
  - Erythema [Recovered/Resolved]
  - Poor quality product administered [Unknown]
  - Pruritus [Recovered/Resolved]
